FAERS Safety Report 5012545-4 (Version None)
Quarter: 2006Q2

REPORT INFORMATION
  Report Type: 
  Country: None (occurrence: None)
  Receive Date: 20060526
  Receipt Date: 20060522
  Transmission Date: 20061013
  Serious: Yes (Death, Congenital Anomaly)
  Sender: FDA-Public Use
  Company Number: US-MERCK-0605USA04398B1

PATIENT

DRUGS (1)
  1. PROPECIA [Suspect]
     Dates: start: 20030101

REACTIONS (1)
  - CONGENITAL ANOMALY [None]
